FAERS Safety Report 10899128 (Version 2)
Quarter: 2015Q2

REPORT INFORMATION
  Report Type: Report from Study
  Country: US (occurrence: US)
  Receive Date: 20150309
  Receipt Date: 20150414
  Transmission Date: 20150821
  Serious: Yes (Other)
  Sender: FDA-Public Use
  Company Number: US-GILEAD-2015-0140577

PATIENT
  Age: 82 Year
  Sex: Male

DRUGS (2)
  1. IDELALISIB [Suspect]
     Active Substance: IDELALISIB
     Indication: CHRONIC LYMPHOCYTIC LEUKAEMIA
     Dosage: 150 MG, UNK
     Route: 048
     Dates: start: 20150109
  2. IDELALISIB [Suspect]
     Active Substance: IDELALISIB
     Dosage: 150 UNK, UNK
     Route: 048

REACTIONS (2)
  - Transient ischaemic attack [Unknown]
  - Cerebrovascular accident [Unknown]
